FAERS Safety Report 5752447-9 (Version None)
Quarter: 2008Q2

REPORT INFORMATION
  Report Type: 
  Country: None (occurrence: None)
  Receive Date: 20080529
  Receipt Date: 20080523
  Transmission Date: 20081010
  Serious: Yes (Other)
  Sender: FDA-Public Use
  Company Number: B0522792A

PATIENT

DRUGS (1)
  1. FORTUM [Suspect]
     Indication: INFECTION
     Route: 042

REACTIONS (7)
  - ERYTHEMA [None]
  - LOSS OF CONSCIOUSNESS [None]
  - MALAISE [None]
  - PRURITUS GENERALISED [None]
  - RASH ERYTHEMATOUS [None]
  - VOMITING [None]
  - WHEEZING [None]
